FAERS Safety Report 4367853-7 (Version None)
Quarter: 2004Q2

REPORT INFORMATION
  Report Type: 
  Country: None (occurrence: None)
  Receive Date: 20040601
  Receipt Date: 20040601
  Transmission Date: 20050107
  Serious: Yes (Other)
  Sender: FDA-Public Use
  Company Number: None

PATIENT
  Age: 41 Year
  Sex: Male
  Weight: 103 kg

DRUGS (11)
  1. GEODON [Suspect]
     Indication: AGITATION
     Dosage: 20MG BID ORAL
     Route: 048
     Dates: start: 20040327, end: 20040329
  2. GEODON [Suspect]
     Indication: BIPOLAR DISORDER
     Dosage: 20MG BID ORAL
     Route: 048
     Dates: start: 20040327, end: 20040329
  3. GEODON [Suspect]
     Indication: MANIA
     Dosage: 20MG BID ORAL
     Route: 048
     Dates: start: 20040327, end: 20040329
  4. CYCLOBENZAPRINE [Concomitant]
  5. RANITIDINE [Concomitant]
  6. CARBAMAZEPINE [Concomitant]
  7. CLONAZEPAM [Concomitant]
  8. LANSOPRAZOLE [Concomitant]
  9. MULTI-VITAMIN [Concomitant]
  10. OXYCODONE [Concomitant]
  11. METHADONE HCL [Concomitant]

REACTIONS (1)
  - RASH [None]
